FAERS Safety Report 9249220 (Version 2)
Quarter: 2013Q2

REPORT INFORMATION
  Report Type: Spontaneous
  Country: US (occurrence: US)
  Receive Date: 20130422
  Receipt Date: 20130426
  Transmission Date: 20140414
  Serious: Yes (Other)
  Sender: FDA-Public Use
  Company Number: US-RB-053142-13

PATIENT
  Age: 72 Year
  Sex: Female

DRUGS (2)
  1. MUCINEX DM [Suspect]
     Indication: NASOPHARYNGITIS
     Route: 048
     Dates: start: 20130410
  2. PROZAC [Concomitant]
     Indication: PRODUCT USED FOR UNKNOWN INDICATION

REACTIONS (4)
  - Disturbance in attention [Unknown]
  - Fall [Unknown]
  - Confusional state [Unknown]
  - Headache [Not Recovered/Not Resolved]
